FAERS Safety Report 6762203-0 (Version None)
Quarter: 2010Q2

REPORT INFORMATION
  Report Type: 
  Country: None (occurrence: None)
  Receive Date: 20100609
  Receipt Date: 20100427
  Transmission Date: 20101027
  Serious: No
  Sender: FDA-Public Use
  Company Number: US-KINGPHARMUSA00001-K201000519

PATIENT
  Age: 31 Year
  Sex: Male

DRUGS (1)
  1. EMBEDA [Suspect]
     Indication: PAIN
     Dosage: 60 MG, Q12 HOURS

REACTIONS (3)
  - ABNORMAL SENSATION IN EYE [None]
  - ADVERSE REACTION [None]
  - DYSPEPSIA [None]
